FAERS Safety Report 14956637 (Version 1)
Quarter: 2018Q2

REPORT INFORMATION
  Report Type: Spontaneous
  Country: ZA (occurrence: ZA)
  Receive Date: 20180531
  Receipt Date: 20180531
  Transmission Date: 20180711
  Serious: Yes (Life-Threatening)
  Sender: FDA-Public Use
  Company Number: ZA-ACCORD-067570

PATIENT
  Age: 65 Year
  Sex: Female
  Weight: 65 kg

DRUGS (5)
  1. EPILIM [Concomitant]
     Active Substance: VALPROATE SODIUM
     Indication: SEIZURE
     Route: 048
     Dates: start: 20171117
  2. OMEZ [Concomitant]
     Active Substance: OMEPRAZOLE
     Route: 048
     Dates: start: 20171117
  3. STILPANE [Concomitant]
     Route: 048
     Dates: start: 20171117
  4. TEMINTAS [Suspect]
     Active Substance: TEMOZOLOMIDE
     Indication: GLIOBLASTOMA
     Route: 048
     Dates: start: 20171128, end: 20180115
  5. PLENISH-K [Concomitant]
     Active Substance: POTASSIUM CHLORIDE
     Route: 048
     Dates: start: 20171117

REACTIONS (3)
  - Jaundice [None]
  - Drug-induced liver injury [Recovering/Resolving]
  - Liver function test increased [None]

NARRATIVE: CASE EVENT DATE: 20180115
